FAERS Safety Report 4311209-X (Version None)
Quarter: 2004Q1

REPORT INFORMATION
  Report Type: 
  Country: None (occurrence: None)
  Receive Date: 20040302
  Receipt Date: 20040112
  Transmission Date: 20041129
  Serious: No
  Sender: FDA-Public Use
  Company Number: 200324495BWH

PATIENT
  Age: 60 Year
  Sex: Male

DRUGS (7)
  1. LEVITRA [Suspect]
     Indication: ERECTILE DYSFUNCTION
     Dosage: 10 MG, OW, ORAL
     Route: 048
     Dates: start: 20030907
  2. ALLEGRA-D [Concomitant]
  3. NEXIUM [Concomitant]
  4. COZAAR [Concomitant]
  5. DILTIAZEM [Concomitant]
  6. NABUMETONE [Concomitant]
  7. VIAGRA [Concomitant]

REACTIONS (1)
  - ERECTILE DYSFUNCTION [None]
